FAERS Safety Report 12628746 (Version 1)
Quarter: 2016Q3

REPORT INFORMATION
  Report Type: Spontaneous
  Country: CA (occurrence: CA)
  Receive Date: 20160808
  Receipt Date: 20160808
  Transmission Date: 20161109
  Serious: Yes (Hospitalization, Other)
  Sender: FDA-Public Use
  Company Number: CA-ACCORD-042925

PATIENT
  Age: 39 Year
  Sex: Male

DRUGS (6)
  1. QUETIAPINE. [Interacting]
     Active Substance: QUETIAPINE
  2. PRIMIDONE. [Interacting]
     Active Substance: PRIMIDONE
  3. ESCITALOPRAM [Suspect]
     Active Substance: ESCITALOPRAM OXALATE
  4. BUPROPION/BUPROPION HYDROCHLORIDE [Interacting]
     Active Substance: BUPROPION HYDROCHLORIDE
  5. OLANZAPINE. [Interacting]
     Active Substance: OLANZAPINE
  6. PHENYTOIN. [Interacting]
     Active Substance: PHENYTOIN

REACTIONS (3)
  - Overdose [Unknown]
  - Drug interaction [Unknown]
  - Serotonin syndrome [Recovered/Resolved]
